FAERS Safety Report 6749090-1 (Version None)
Quarter: 2010Q2

REPORT INFORMATION
  Report Type: 
  Country: None (occurrence: None)
  Receive Date: 20100601
  Receipt Date: 20090626
  Transmission Date: 20101027
  Serious: Yes (Other)
  Sender: FDA-Public Use
  Company Number: US-BAYER-200829268NA

PATIENT
  Age: 43 Year
  Sex: Female

DRUGS (15)
  1. MAGNEVIST [Suspect]
     Indication: NUCLEAR MAGNETIC RESONANCE IMAGING
  2. OMNISCAN [Suspect]
     Indication: NUCLEAR MAGNETIC RESONANCE IMAGING
     Route: 042
     Dates: start: 20041110, end: 20041110
  3. OPTIMARK [Suspect]
     Indication: NUCLEAR MAGNETIC RESONANCE IMAGING
  4. MULTIHANCE [Suspect]
     Indication: NUCLEAR MAGNETIC RESONANCE IMAGING
  5. PROHANCE [Suspect]
     Indication: NUCLEAR MAGNETIC RESONANCE IMAGING
  6. LISINOPRIL [Concomitant]
     Dates: start: 20040101, end: 20080101
  7. FUROSEMIDE [Concomitant]
     Dates: start: 20040101, end: 20080101
  8. TOPROL-XL [Concomitant]
     Dates: start: 20040101, end: 20080101
  9. FORTEO [Concomitant]
     Dosage: TOTAL DAILY DOSE: 1 DF
     Route: 048
  10. ASPIRIN [Concomitant]
     Dosage: ONE PER DAY
     Route: 048
  11. RAPID RELEASE PAIN RELIEF [Concomitant]
     Route: 048
  12. IRON NOS [Concomitant]
     Dosage: 1 OR 2 PER DAY
     Route: 048
  13. CALTRATE [Concomitant]
     Route: 048
     Dates: start: 20060101, end: 20060101
  14. MELPHALAN HYDROCHLORIDE [Concomitant]
     Indication: AMYLOIDOSIS
     Dates: start: 20050101, end: 20060101
  15. PREDNISONE TAB [Concomitant]
     Indication: AMYLOIDOSIS
     Dates: start: 20050101, end: 20060101

REACTIONS (10)
  - ABASIA [None]
  - ANXIETY [None]
  - ASTHENIA [None]
  - EMOTIONAL DISTRESS [None]
  - GENERAL PHYSICAL HEALTH DETERIORATION [None]
  - INJURY [None]
  - JOINT RANGE OF MOTION DECREASED [None]
  - MOBILITY DECREASED [None]
  - NEPHROGENIC SYSTEMIC FIBROSIS [None]
  - PAIN [None]
